FAERS Safety Report 4427302-7 (Version None)
Quarter: 2004Q3

REPORT INFORMATION
  Report Type: 
  Country: None (occurrence: None)
  Receive Date: 20040817
  Receipt Date: 20040714
  Transmission Date: 20050211
  Serious: Yes (Hospitalization)
  Sender: FDA-Public Use
  Company Number: US-BRISTOL-MYERS SQUIBB COMPANY-12641304

PATIENT
  Age: 45 Year
  Sex: Male

DRUGS (4)
  1. ABILIFY [Suspect]
     Indication: SCHIZOPHRENIA
     Route: 048
     Dates: start: 20040702, end: 20040710
  2. PROLIXIN [Concomitant]
  3. DEPAKOTE [Concomitant]
     Dosage: FOR ^YEARS^
  4. BENADRYL [Concomitant]
     Dosage: 20-50 MG/DAY, PT HAS NEW RX, UNSURE IF STARTED

REACTIONS (11)
  - ANOREXIA [None]
  - BLOOD CREATINE PHOSPHOKINASE INCREASED [None]
  - CONFUSIONAL STATE [None]
  - DEHYDRATION [None]
  - INSOMNIA [None]
  - MYOGLOBIN BLOOD INCREASED [None]
  - NAUSEA [None]
  - PSYCHOTIC DISORDER [None]
  - SUICIDAL IDEATION [None]
  - VOMITING [None]
  - WHITE BLOOD CELL COUNT INCREASED [None]
